FAERS Safety Report 12867387 (Version 2)
Quarter: 2016Q4

REPORT INFORMATION
  Report Type: Report from Study
  Country: US (occurrence: US)
  Receive Date: 20161020
  Receipt Date: 20161123
  Transmission Date: 20170207
  Serious: Yes (Hospitalization, Other)
  Sender: FDA-Public Use
  Company Number: US-B.I. PHARMACEUTICALS,INC./RIDGEFIELD-2016-BI-065801

PATIENT
  Age: 81 Year
  Sex: Male
  Weight: 51.26 kg

DRUGS (2)
  1. GILOTRIF [Suspect]
     Active Substance: AFATINIB
     Indication: NON-SMALL CELL LUNG CANCER
     Route: 048
     Dates: start: 20160924
  2. GILOTRIF [Suspect]
     Active Substance: AFATINIB
     Dosage: UNIT AND DAILY DOSE: 1/2 TAB
     Route: 048

REACTIONS (6)
  - Eating disorder [Unknown]
  - Diarrhoea [Recovered/Resolved]
  - Stomatitis [Unknown]
  - Diarrhoea [Unknown]
  - Eye pain [Unknown]
  - Weight decreased [Unknown]

NARRATIVE: CASE EVENT DATE: 20160924
